FAERS Safety Report 7292068-2 (Version None)
Quarter: 2011Q1

REPORT INFORMATION
  Report Type: 
  Country: None (occurrence: None)
  Receive Date: 20110215
  Receipt Date: 20110204
  Transmission Date: 20110831
  Serious: No
  Sender: FDA-Public Use
  Company Number: US-BIOGENIDEC-2011BI004741

PATIENT
  Sex: Female

DRUGS (2)
  1. AVONEX [Suspect]
     Indication: MULTIPLE SCLEROSIS
     Route: 030
     Dates: end: 20100204
  2. AVONEX [Suspect]
     Route: 030
     Dates: start: 20030401, end: 20060308

REACTIONS (4)
  - HYPOAESTHESIA [None]
  - INJECTION SITE HAEMORRHAGE [None]
  - NERVOUSNESS [None]
  - INJURY ASSOCIATED WITH DEVICE [None]
